FAERS Safety Report 4343286-4 (Version None)
Quarter: 2004Q1

REPORT INFORMATION
  Report Type: 
  Country: None (occurrence: None)
  Receive Date: 20040325
  Receipt Date: 20040206
  Transmission Date: 20041129
  Serious: No
  Sender: FDA-Public Use
  Company Number: USA031153431

PATIENT
  Age: 71 Year
  Sex: Female

DRUGS (5)
  1. FORTEO [Suspect]
     Indication: OSTEOPOROSIS
     Dosage: 20 UG/DAY
     Dates: start: 20030901
  2. LEVOXYL [Concomitant]
  3. CALCIUM [Concomitant]
  4. VITAMIN E [Concomitant]
  5. ADVAIR DISKUS 100/50 [Concomitant]

REACTIONS (8)
  - DIZZINESS [None]
  - HEART RATE INCREASED [None]
  - MUSCLE CRAMP [None]
  - NECK PAIN [None]
  - NOCTURIA [None]
  - POLLAKIURIA [None]
  - POLYDIPSIA [None]
  - THIRST [None]
